FAERS Safety Report 16083324 (Version 1)
Quarter: 2019Q1

REPORT INFORMATION
  Report Type: Spontaneous
  Country: US (occurrence: US)
  Receive Date: 20190318
  Receipt Date: 20190318
  Transmission Date: 20190418
  Serious: No
  Sender: FDA-Public Use
  Company Number: US-TEVA-2019-US-1016903

PATIENT
  Sex: Female
  Weight: 67.19 kg

DRUGS (5)
  1. PREDNISONE ACTAVIS [Suspect]
     Active Substance: PREDNISONE
     Dosage: 40 MILLIGRAM DAILY;
     Route: 048
  2. PREDNISONE ACTAVIS [Suspect]
     Active Substance: PREDNISONE
     Dosage: ONE TO TWO TABLETS DAILY.
     Route: 048
  3. PREDNISONE ACTAVIS [Suspect]
     Active Substance: PREDNISONE
     Indication: SYSTEMIC LUPUS ERYTHEMATOSUS
     Dosage: 60 MILLIGRAM DAILY;
     Route: 048
  4. PREDNISONE ACTAVIS [Suspect]
     Active Substance: PREDNISONE
     Dosage: 20 MILLIGRAM DAILY;
     Route: 048
  5. PREDNISONE ACTAVIS [Suspect]
     Active Substance: PREDNISONE
     Dosage: ONE TO TWO TABLETS DAILY.
     Route: 048

REACTIONS (3)
  - Drug effect delayed [Unknown]
  - Rash [None]
  - Systemic lupus erythematosus [None]
